FAERS Safety Report 10170045 (Version 2)
Quarter: 2014Q2

REPORT INFORMATION
  Report Type: Spontaneous
  Country: US (occurrence: US)
  Receive Date: 20140513
  Receipt Date: 20140513
  Transmission Date: 20141212
  Serious: Yes (Other)
  Sender: FDA-Public Use
  Company Number: US-009507513-1107USA03836

PATIENT
  Sex: Female

DRUGS (2)
  1. FOSAMAX [Suspect]
     Indication: OSTEOPOROSIS
     Dosage: UNK
     Route: 048
  2. ALENDRONATE SODIUM [Suspect]
     Dosage: UNK
     Route: 048

REACTIONS (3)
  - Femur fracture [Unknown]
  - Femur fracture [Unknown]
  - Bone disorder [Unknown]
